FAERS Safety Report 6999583-7 (Version None)
Quarter: 2010Q3

REPORT INFORMATION
  Report Type: 
  Country: None (occurrence: None)
  Receive Date: 20100920
  Receipt Date: 20100203
  Transmission Date: 20110219
  Serious: Yes (Other)
  Sender: FDA-Public Use
  Company Number: US-ASTRAZENECA-2008UW28750

PATIENT
  Age: 53 Year
  Sex: Male
  Weight: 102.5 kg

DRUGS (13)
  1. SEROQUEL [Suspect]
     Indication: BIPOLAR DISORDER
     Route: 048
     Dates: start: 20050501, end: 20070101
  2. SEROQUEL [Suspect]
     Indication: SCHIZOPHRENIA
     Route: 048
     Dates: start: 20050501, end: 20070101
  3. SEROQUEL [Suspect]
     Route: 048
     Dates: start: 20050801, end: 20060101
  4. SEROQUEL [Suspect]
     Route: 048
     Dates: start: 20050801, end: 20060101
  5. REQUIP 1.0 [Concomitant]
     Indication: SCHIZOPHRENIA
  6. COGENTIN [Concomitant]
     Indication: SCHIZOPHRENIA
  7. GEODON [Concomitant]
     Indication: BIPOLAR DISORDER
     Dates: start: 20060101
  8. TRAZODONE HCL [Concomitant]
     Indication: DEPRESSION
     Dates: start: 20060101
  9. TRAZODONE HCL [Concomitant]
     Indication: BIPOLAR DISORDER
     Dates: start: 20060101
  10. TRAZODONE HCL [Concomitant]
     Indication: ANXIETY
     Dates: start: 20060101
  11. THORAZINE [Concomitant]
     Indication: BIPOLAR DISORDER
     Dates: start: 20050101, end: 20060101
  12. LEXAPRO [Concomitant]
     Indication: DEPRESSION
     Dates: start: 20040101, end: 20060101
  13. LEXAPRO [Concomitant]
     Indication: ANXIETY
     Dates: start: 20040101, end: 20060101

REACTIONS (4)
  - BLOOD CHOLESTEROL INCREASED [None]
  - HYPERLIPIDAEMIA [None]
  - TARDIVE DYSKINESIA [None]
  - TYPE 2 DIABETES MELLITUS [None]
